FAERS Safety Report 6366861-4 (Version None)
Quarter: 2009Q3

REPORT INFORMATION
  Report Type: 
  Country: None (occurrence: None)
  Receive Date: 20090921
  Receipt Date: 20090917
  Transmission Date: 20100115
  Serious: Yes (Hospitalization)
  Sender: FDA-Public Use
  Company Number: DE-AVENTIS-200912233DE

PATIENT
  Sex: Female

DRUGS (1)
  1. TAXOTERE [Suspect]
     Dosage: DOSE: NOT REPORTED
     Dates: start: 20090828, end: 20090828

REACTIONS (2)
  - BONE PAIN [None]
  - NEUTROPENIA [None]
